FAERS Safety Report 10589206 (Version 3)
Quarter: 2015Q1

REPORT INFORMATION
  Report Type: Spontaneous
  Country: US (occurrence: US)
  Receive Date: 20141118
  Receipt Date: 20150128
  Transmission Date: 20150720
  Serious: Yes (Death)
  Sender: FDA-Public Use
  Company Number: US-JNJFOC-20141108632

PATIENT
  Age: 66 Year
  Sex: Female
  Weight: 66.68 kg

DRUGS (7)
  1. TYLENOL EXTRA STRENGTH [Suspect]
     Active Substance: ACETAMINOPHEN
     Route: 048
  2. HYDROCODONE 5/ACETAMINOPHEN 500 [Suspect]
     Active Substance: ACETAMINOPHEN\HYDROCODONE
     Indication: PAIN
     Dosage: 5MG/500MG
     Route: 048
     Dates: start: 2011, end: 201210
  3. TYLENOL EXTRA STRENGTH [Suspect]
     Active Substance: ACETAMINOPHEN
     Indication: ABDOMINAL PAIN UPPER
     Dosage: FREQUENCY: EVERY MORNING AND SOMETIMES THROUGHOUT THE DAY
     Route: 048
     Dates: start: 2007, end: 201210
  4. TYLENOL ARTHRITIS PAIN [Suspect]
     Active Substance: ACETAMINOPHEN
     Indication: ARTHRALGIA
     Route: 065
     Dates: start: 2011, end: 201210
  5. TYLENOL PM [Suspect]
     Active Substance: ACETAMINOPHEN\DIPHENHYDRAMINE
     Indication: ABDOMINAL PAIN UPPER
     Dosage: DOSAGE: 3-4
     Route: 048
     Dates: start: 2007, end: 201210
  6. TYLENOL PM [Suspect]
     Active Substance: ACETAMINOPHEN\DIPHENHYDRAMINE
     Indication: INSOMNIA
     Dosage: DOSAGE: 3-4
     Route: 048
     Dates: start: 2007, end: 201210
  7. TYLENOL ARTHRITIS PAIN [Suspect]
     Active Substance: ACETAMINOPHEN
     Route: 065

REACTIONS (24)
  - Chronic kidney disease [None]
  - Lung infiltration [None]
  - Pelvic infection [None]
  - Alanine aminotransferase increased [None]
  - Aspartate aminotransferase increased [None]
  - Bilirubin conjugated increased [None]
  - Metabolic acidosis [None]
  - Blood bilirubin increased [None]
  - Respiratory failure [None]
  - Sepsis [None]
  - Blood albumin decreased [None]
  - Protein total decreased [None]
  - Unresponsive to stimuli [None]
  - Tricuspid valve incompetence [None]
  - Toxicity to various agents [Fatal]
  - Asthenia [None]
  - Abdominal infection [None]
  - Depression [None]
  - Vomiting [None]
  - Decreased appetite [None]
  - Left ventricular dysfunction [None]
  - Cardiomyopathy [None]
  - Hypophagia [None]
  - Headache [None]

NARRATIVE: CASE EVENT DATE: 20121005
